FAERS Safety Report 6751350-5 (Version None)
Quarter: 2010Q2

REPORT INFORMATION
  Report Type: 
  Country: None (occurrence: None)
  Receive Date: 20100527
  Receipt Date: 20100518
  Transmission Date: 20101027
  Serious: Yes (Life-Threatening)
  Sender: FDA-Public Use
  Company Number: LEO-2010-00448

PATIENT
  Age: 32 Year
  Sex: Female

DRUGS (1)
  1. INNOHEP [Suspect]
     Indication: PORTAL SHUNT

REACTIONS (3)
  - HEPARIN-INDUCED THROMBOCYTOPENIA [None]
  - PULMONARY EMBOLISM [None]
  - SHUNT OCCLUSION [None]
